FAERS Safety Report 7457467-4 (Version None)
Quarter: 2011Q2

REPORT INFORMATION
  Report Type: 
  Country: None (occurrence: None)
  Receive Date: 20110504
  Receipt Date: 20110420
  Transmission Date: 20111010
  Serious: Yes (Hospitalization, Disabling, Other)
  Sender: FDA-Public Use
  Company Number: US-SOLVAY-00211001901

PATIENT
  Age: 632 Month
  Sex: Male
  Weight: 115.45 kg

DRUGS (6)
  1. CLONAZPAM [Concomitant]
     Indication: ANXIETY
     Dosage: DAILY DOSE: 2 MILLIGRAM(S)
     Route: 048
  2. OMEPRAZOLE [Concomitant]
     Indication: GASTROOESOPHAGEAL REFLUX DISEASE
     Dosage: DAILY DOSE: 40 MILLIGRAM(S)
     Route: 048
  3. NYQUIL [Suspect]
     Indication: LOWER RESPIRATORY TRACT INFECTION
     Dosage: DAILY DOSE:  UNKNOWN
     Route: 048
     Dates: start: 20101231
  4. ANDROGEL [Suspect]
     Indication: BLOOD TESTOSTERONE DECREASED
     Dosage: DAILY DOSE: 7.5 GRAM(S), 3 PUMPS/ARM
     Route: 062
     Dates: start: 20090101
  5. LEXAPRO [Concomitant]
     Indication: DEPRESSION
     Dosage: DAILY DOSE: 40 MILLIGRAM(S)
     Route: 048
  6. BUSPAR [Concomitant]
     Indication: ANXIETY
     Dosage: DAILY DOSE: 60 MILLIGRAM(S)
     Route: 048

REACTIONS (8)
  - FALL [None]
  - ROAD TRAFFIC ACCIDENT [None]
  - WEIGHT DECREASED [None]
  - DEHYDRATION [None]
  - SINUSITIS [None]
  - ILL-DEFINED DISORDER [None]
  - VOMITING [None]
  - RIB FRACTURE [None]
